FAERS Safety Report 12339369 (Version 2)
Quarter: 2016Q3

REPORT INFORMATION
  Report Type: Other
  Country: FR (occurrence: FR)
  Receive Date: 20160505
  Receipt Date: 20160713
  Transmission Date: 20161109
  Serious: Yes (Hospitalization, Other)
  Sender: FDA-Public Use
  Company Number: FR-TAKEDA-2016TEU002742

PATIENT
  Age: 46 Year
  Sex: Female

DRUGS (1)
  1. TACHOSIL [Suspect]
     Active Substance: FIBRINOGEN HUMAN\THROMBIN HUMAN
     Indication: PRODUCT USED FOR UNKNOWN INDICATION
     Dosage: UNK
     Route: 033
     Dates: start: 20151210

REACTIONS (4)
  - Peritonitis [Recovered/Resolved]
  - Application site nodule [Recovered/Resolved]
  - Large intestine perforation [Recovered/Resolved]
  - Colectomy [Recovered/Resolved]
